FAERS Safety Report 19721060 (Version 1)
Quarter: 2021Q3

REPORT INFORMATION
  Report Type: Spontaneous
  Country: US (occurrence: US)
  Receive Date: 20210818
  Receipt Date: 20210818
  Transmission Date: 20211014
  Serious: Yes (Other)
  Sender: FDA-Public Use
  Company Number: US-009507513-2106USA004686

PATIENT
  Sex: Female

DRUGS (2)
  1. LENVATINIB MESYLATE [Suspect]
     Active Substance: LENVATINIB MESYLATE
     Indication: ENDOMETRIAL CANCER
     Dosage: 14 MILLIGRAM
     Dates: start: 20200107, end: 20210126
  2. KEYTRUDA [Suspect]
     Active Substance: PEMBROLIZUMAB
     Indication: ENDOMETRIAL CANCER
     Dosage: 200 MILLIGRAM, Q3W
     Dates: start: 20201210, end: 20210603

REACTIONS (22)
  - Malignant neoplasm progression [Unknown]
  - Pleural effusion [Unknown]
  - Platelet count abnormal [Unknown]
  - Atelectasis [Unknown]
  - Arteriosclerosis [Unknown]
  - Myalgia [Unknown]
  - Vascular graft [Unknown]
  - Memory impairment [Unknown]
  - Fatigue [Not Recovered/Not Resolved]
  - Nausea [Not Recovered/Not Resolved]
  - Dementia [Unknown]
  - Atelectasis [Unknown]
  - Cough [Not Recovered/Not Resolved]
  - Dementia Alzheimer^s type [Unknown]
  - Pleural effusion [Unknown]
  - Carbohydrate antigen 125 increased [Unknown]
  - Thrombocytopenia [Unknown]
  - Hypothyroidism [Unknown]
  - Pleural effusion [Unknown]
  - Balance disorder [Unknown]
  - Intra-abdominal fluid collection [Unknown]
  - Adverse event [Unknown]

NARRATIVE: CASE EVENT DATE: 2020
